FAERS Safety Report 23845179 (Version 1)
Quarter: 2024Q2

REPORT INFORMATION
  Report Type: Spontaneous
  Country: FR (occurrence: FR)
  Receive Date: 20240511
  Receipt Date: 20240511
  Transmission Date: 20240715
  Serious: Yes (Hospitalization)
  Sender: FDA-Public Use
  Company Number: None

PATIENT
  Age: 54 Year
  Sex: Female
  Weight: 79 kg

DRUGS (4)
  1. METHOTREXATE [Suspect]
     Active Substance: METHOTREXATE
     Indication: Acute lymphocytic leukaemia
     Route: 042
     Dates: start: 20240207, end: 20240207
  2. VINCRISTINE [Suspect]
     Active Substance: VINCRISTINE
     Indication: Acute lymphocytic leukaemia
     Dosage: VINCRISTIN SULFATE
     Route: 042
     Dates: start: 20240207, end: 20240207
  3. PRISTINAMYCIN [Suspect]
     Active Substance: PRISTINAMYCIN
     Indication: Infection
     Route: 042
     Dates: start: 20240207, end: 20240209
  4. PURINETHOL [Suspect]
     Active Substance: MERCAPTOPURINE
     Indication: Acute lymphocytic leukaemia
     Route: 048
     Dates: start: 20240207, end: 20240209

REACTIONS (1)
  - Hepatitis [Recovered/Resolved]

NARRATIVE: CASE EVENT DATE: 20240210
